FAERS Safety Report 5222565-2 (Version None)
Quarter: 2007Q1

REPORT INFORMATION
  Report Type: 
  Country: None (occurrence: None)
  Receive Date: 20070129
  Receipt Date: 20070115
  Transmission Date: 20070707
  Serious: Yes (Hospitalization)
  Sender: FDA-Public Use
  Company Number: US-ELI_LILLY_AND_COMPANY-US200511000431

PATIENT
  Age: 55 Year
  Sex: Female

DRUGS (3)
  1. CIPRO [Concomitant]
  2. CYMBALTA [Suspect]
     Dosage: 60 MG, UNK
     Dates: start: 20050101
  3. LIORESAL [Interacting]
     Indication: PAIN
     Route: 037

REACTIONS (2)
  - DRUG INTERACTION [None]
  - RESPIRATORY DEPRESSION [None]
